FAERS Safety Report 25444847 (Version 1)
Quarter: 2025Q2

REPORT INFORMATION
  Report Type: Spontaneous
  Country: US (occurrence: None)
  Receive Date: 20250616
  Receipt Date: 20250616
  Transmission Date: 20250717
  Serious: Yes (unspecified)
  Sender: FDA-CTU
  Company Number: None

PATIENT
  Age: 43 Year
  Sex: Female
  Weight: 90.7 kg

DRUGS (5)
  1. AMPICILLIN SODIUM\SULBACTAM SODIUM [Suspect]
     Active Substance: AMPICILLIN SODIUM\SULBACTAM SODIUM
     Indication: Abdominal abscess
     Dosage: 3 G GRAM(S)  4 TIMES A DAY INTRAVENOUS ?
     Route: 042
     Dates: start: 20250418, end: 20250427
  2. AUGMENTIN [Suspect]
     Active Substance: AMOXICILLIN\CLAVULANATE POTASSIUM
  3. PENICILLIN [Suspect]
     Active Substance: PENICILLIN
  4. AMOXICILLIN [Suspect]
     Active Substance: AMOXICILLIN
  5. AMPICILLIN [Suspect]
     Active Substance: AMPICILLIN

REACTIONS (4)
  - Chills [None]
  - Abdominal discomfort [None]
  - Urticaria [None]
  - Type IV hypersensitivity reaction [None]

NARRATIVE: CASE EVENT DATE: 20250426
